FAERS Safety Report 17870440 (Version 2)
Quarter: 2020Q2

REPORT INFORMATION
  Report Type: Spontaneous
  Country: FR (occurrence: FR)
  Receive Date: 20200608
  Receipt Date: 20200617
  Transmission Date: 20200714
  Serious: No
  Sender: FDA-Public Use
  Company Number: FR-JNJFOC-20200532950

PATIENT
  Age: 72 Year
  Sex: Female

DRUGS (1)
  1. DUROGESIC [Suspect]
     Active Substance: FENTANYL
     Indication: PRODUCT USED FOR UNKNOWN INDICATION
     Dosage: STRENGTH: 50.00 MCG/HR
     Route: 062

REACTIONS (4)
  - Off label use [Unknown]
  - Inappropriate schedule of product administration [Unknown]
  - Application site erythema [Unknown]
  - Product adhesion issue [Unknown]
